FAERS Safety Report 5635734-4 (Version None)
Quarter: 2008Q1

REPORT INFORMATION
  Report Type: 
  Country: None (occurrence: None)
  Receive Date: 20080220
  Receipt Date: 20080212
  Transmission Date: 20080703
  Serious: Yes (Other)
  Sender: FDA-Public Use
  Company Number: 2007AP001534

PATIENT
  Sex: 0

DRUGS (1)
  1. ACYCLOVIR [Suspect]
     Indication: PROPHYLAXIS
     Dosage: TRPL; 60 MG/KG IV; TID
     Route: 064

REACTIONS (13)
  - CSF VIRUS IDENTIFIED [None]
  - DRUG EXPOSURE DURING PREGNANCY [None]
  - FEVER NEONATAL [None]
  - GASTROINTESTINAL PERFORATION [None]
  - GENITAL HERPES [None]
  - HERPES PHARYNGITIS [None]
  - HERPES SIMPLEX [None]
  - HERPES SIMPLEX VIRUS CONJUNCTIVITIS NEONATAL [None]
  - NECROTISING ENTEROCOLITIS NEONATAL [None]
  - NEONATAL INFECTION [None]
  - PNEUMATOSIS INTESTINALIS [None]
  - RECTAL HAEMORRHAGE [None]
  - VOMITING NEONATAL [None]
